FAERS Safety Report 7034128-7 (Version None)
Quarter: 2010Q4

REPORT INFORMATION
  Report Type: 
  Country: None (occurrence: None)
  Receive Date: 20101008
  Receipt Date: 20100927
  Transmission Date: 20110411
  Serious: Yes (Hospitalization, Other)
  Sender: FDA-Public Use
  Company Number: US-BAYER-200933781NA

PATIENT
  Age: 30 Year
  Sex: Female
  Weight: 63 kg

DRUGS (3)
  1. MIRENA [Suspect]
     Indication: CONTRACEPTION
     Dosage: CONTINUOUS
     Route: 015
     Dates: start: 20090512, end: 20090925
  2. PRENATAL VITAMINS [Concomitant]
  3. COLACE [Concomitant]

REACTIONS (4)
  - FLANK PAIN [None]
  - POST PROCEDURAL DISCOMFORT [None]
  - URINARY TRACT INFECTION [None]
  - UTERINE PERFORATION [None]
